FAERS Safety Report 5988138-9 (Version None)
Quarter: 2008Q4

REPORT INFORMATION
  Report Type: 
  Country: None (occurrence: None)
  Receive Date: 20081208
  Receipt Date: 20081208
  Transmission Date: 20090506
  Serious: Yes (Hospitalization)
  Sender: FDA-Public Use
  Company Number: None

PATIENT
  Sex: Female
  Weight: 37.6 kg

DRUGS (11)
  1. ERLOTINIB [Suspect]
     Indication: NON-SMALL CELL LUNG CANCER
     Dosage: 150 MG QD PO
     Route: 048
     Dates: start: 20081101, end: 20081130
  2. AZITHROMYCIN [Concomitant]
  3. STEROID TAPER [Concomitant]
  4. SPIRIVA [Concomitant]
  5. ALBUTEROL [Concomitant]
  6. NORVASC [Concomitant]
  7. FOLIC ACID [Concomitant]
  8. HYDROCHLOROTHIAZIDE [Concomitant]
  9. COUMADIN [Concomitant]
  10. CELEXA [Concomitant]
  11. TESSALON [Concomitant]

REACTIONS (1)
  - BRONCHITIS [None]
